FAERS Safety Report 8596259 (Version 3)
Quarter: 2014Q1

REPORT INFORMATION
  Report Type: Spontaneous
  Country: US (occurrence: US)
  Receive Date: 20120605
  Receipt Date: 20140107
  Transmission Date: 20141002
  Serious: Yes (Other)
  Sender: FDA-Public Use
  Company Number: US-ASTRAZENECA-2012SE34493

PATIENT
  Age: 45 Year
  Sex: Male

DRUGS (11)
  1. NEXIUM [Suspect]
     Indication: GASTROOESOPHAGEAL REFLUX DISEASE
     Route: 048
     Dates: start: 2006, end: 2010
  2. NEXIUM [Suspect]
     Indication: GASTROOESOPHAGEAL REFLUX DISEASE
     Route: 048
     Dates: start: 20080902
  3. PANTOPRAZOLE [Concomitant]
  4. ASPIRIN [Concomitant]
  5. VIT C [Concomitant]
  6. GLUCOSAMINE [Concomitant]
  7. FISH OIL [Concomitant]
  8. VYTORIN [Concomitant]
     Indication: BLOOD CHOLESTEROL ABNORMAL
  9. SIMVASTATIN [Concomitant]
  10. LEVAQUIN [Concomitant]
     Dates: start: 20100712
  11. CRESTOR [Concomitant]
     Dates: start: 20091222

REACTIONS (6)
  - Rotator cuff syndrome [Unknown]
  - Osteoporosis [Unknown]
  - Appendix disorder [Unknown]
  - Hand fracture [Unknown]
  - Plantar fascial fibromatosis [Unknown]
  - Meniscus injury [Unknown]
